FAERS Safety Report 9008341 (Version 1)
Quarter: 2013Q1

REPORT INFORMATION
  Report Type: Spontaneous
  Country: US (occurrence: US)
  Receive Date: 20130111
  Receipt Date: 20130111
  Transmission Date: 20140127
  Serious: Yes (Other)
  Sender: FDA-Public Use
  Company Number: US-009507513-1012USA00454

PATIENT
  Age: 7 Year
  Sex: Male
  Weight: 22.23 kg

DRUGS (5)
  1. SINGULAIR [Suspect]
     Indication: ASTHMA
     Dosage: 4 MG, QD
     Route: 048
     Dates: start: 20081019, end: 20090315
  2. SINGULAIR [Suspect]
     Dosage: 4 MG, QD
     Route: 048
     Dates: start: 20091015, end: 20091231
  3. FLOVENT [Concomitant]
  4. ALLEGRA [Concomitant]
  5. ALBUTEROL [Concomitant]

REACTIONS (16)
  - Suicidal ideation [Unknown]
  - Aggression [Unknown]
  - Anger [Unknown]
  - Anxiety [Unknown]
  - Crying [Unknown]
  - Disturbance in attention [Unknown]
  - Fear [Unknown]
  - Feeling abnormal [Unknown]
  - Middle insomnia [Unknown]
  - Mood swings [Unknown]
  - Nervousness [Unknown]
  - Panic attack [Unknown]
  - Poor quality sleep [Unknown]
  - Sleep terror [Unknown]
  - Social fear [Unknown]
  - Thinking abnormal [Unknown]
